FAERS Safety Report 7634354 (Version 9)
Quarter: 2013Q4

REPORT INFORMATION
  Report Type: Report from Study
  Country: CA (occurrence: CA)
  Receive Date: 20101019
  Receipt Date: 20131021
  Transmission Date: 20140711
  Serious: Yes (Death, Hospitalization, Other)
  Sender: FDA-Public Use
  Company Number: CA-JNJFOC-20100404275

PATIENT
  Age: 55 Year
  Sex: Male
  Weight: 104 kg

DRUGS (6)
  1. REMICADE [Suspect]
     Indication: PSORIASIS
     Route: 042
  2. REMICADE [Suspect]
     Indication: PSORIASIS
     Route: 042
     Dates: end: 201004
  3. REMICADE [Suspect]
     Indication: PSORIASIS
     Route: 042
     Dates: start: 200910
  4. STELARA [Suspect]
     Indication: PSORIASIS
     Route: 058
     Dates: start: 20090414, end: 20090505
  5. ANTIHISTAMINES [Concomitant]
  6. ACETAMINOPHEN [Concomitant]

REACTIONS (2)
  - Hepatic cancer [Fatal]
  - Hepatic failure [Fatal]
